FAERS Safety Report 25360014 (Version 1)
Quarter: 2025Q2

REPORT INFORMATION
  Report Type: Spontaneous
  Country: US (occurrence: US)
  Receive Date: 20250526
  Receipt Date: 20250526
  Transmission Date: 20250716
  Serious: No
  Sender: TAKEDA
  Company Number: US-TAKEDA-2025TUS049063

PATIENT
  Sex: Male
  Weight: 68 kg

DRUGS (6)
  1. ROZEREM [Suspect]
     Active Substance: RAMELTEON
     Indication: Insomnia
     Dosage: 8 MILLIGRAM, QD
  2. RAMELTEON [Suspect]
     Active Substance: RAMELTEON
     Indication: Insomnia
  3. LYRICA [Concomitant]
     Active Substance: PREGABALIN
  4. VRAYLAR [Concomitant]
     Active Substance: CARIPRAZINE
  5. DESIPRAMINE [Concomitant]
     Active Substance: DESIPRAMINE
  6. SUBOXONE [Concomitant]
     Active Substance: BUPRENORPHINE HYDROCHLORIDE\NALOXONE HYDROCHLORIDE

REACTIONS (1)
  - Drug ineffective [Unknown]
